FAERS Safety Report 18597139 (Version 1)
Quarter: 2020Q4

REPORT INFORMATION
  Report Type: Spontaneous
  Country: US (occurrence: US)
  Receive Date: 20201209
  Receipt Date: 20201209
  Transmission Date: 20210114
  Serious: Yes (Other)
  Sender: FDA-Public Use
  Company Number: US-BRACCO-2020US04947

PATIENT
  Age: 78 Year
  Sex: Male

DRUGS (11)
  1. LISINOPRIL. [Concomitant]
     Active Substance: LISINOPRIL
  2. LEVOTHYROXINE. [Concomitant]
     Active Substance: LEVOTHYROXINE
  3. LUMASON [Suspect]
     Active Substance: SULFUR HEXAFLUORIDE
     Indication: ECHOCARDIOGRAM
     Dosage: 2 ML, SINGLE
     Route: 042
     Dates: start: 20201201, end: 20201201
  4. APIXABAN [Concomitant]
     Active Substance: APIXABAN
  5. CARVEDILOL. [Concomitant]
     Active Substance: CARVEDILOL
  6. SPIRONOLACTONE. [Concomitant]
     Active Substance: SPIRONOLACTONE
  7. ROSUVASTATIN. [Concomitant]
     Active Substance: ROSUVASTATIN
  8. LUMASON [Suspect]
     Active Substance: SULFUR HEXAFLUORIDE
     Indication: ECHOCARDIOGRAM
     Dosage: 2 ML, SINGLE
     Route: 042
     Dates: start: 20201201, end: 20201201
  9. LUMASON [Suspect]
     Active Substance: SULFUR HEXAFLUORIDE
     Indication: ECHOCARDIOGRAM
     Dosage: 2 ML, SINGLE
     Route: 042
     Dates: start: 20201201, end: 20201201
  10. PANTOPRAZOLE [Concomitant]
     Active Substance: PANTOPRAZOLE
  11. PLAVIX [Concomitant]
     Active Substance: CLOPIDOGREL BISULFATE

REACTIONS (6)
  - Hypotension [Recovered/Resolved]
  - Pupil fixed [Recovered/Resolved]
  - Feeling hot [Recovered/Resolved]
  - Oxygen saturation decreased [Recovered/Resolved]
  - Unresponsive to stimuli [Recovered/Resolved]
  - Salivary hypersecretion [Recovered/Resolved]

NARRATIVE: CASE EVENT DATE: 20201201
